FAERS Safety Report 6755225 (Version 2)
Quarter: 2016Q1

REPORT INFORMATION
  Report Type: Spontaneous
  Country: GB (occurrence: GB)
  Receive Date: 20080912
  Receipt Date: 20160112
  Transmission Date: 20160526
  Serious: Yes (Disabling, Congenital Anomaly, Other)
  Sender: FDA-Public Use
  Company Number: GB-BRISTOL-MYERS SQUIBB COMPANY-14328561

PATIENT
  Sex: Male
  Weight: 2.6 kg

DRUGS (2)
  1. ABILIFY [Suspect]
     Active Substance: ARIPIPRAZOLE
     Indication: PRODUCT USED FOR UNKNOWN INDICATION
     Dosage: UNK
     Route: 064
  2. TRIFLUOPERAZINE [Concomitant]
     Active Substance: TRIFLUOPERAZINE\TRIFLUOPERAZINE HYDROCHLORIDE
     Indication: PRODUCT USED FOR UNKNOWN INDICATION
     Dosage: 1 MG, QID
     Route: 064

REACTIONS (5)
  - Low birth weight baby [Unknown]
  - Oesophageal atresia [Unknown]
  - Congenital absence of vertebra [Unknown]
  - Tracheo-oesophageal fistula [Unknown]
  - Foetal exposure during pregnancy [Unknown]
